FAERS Safety Report 7339916-5 (Version None)
Quarter: 2011Q1

REPORT INFORMATION
  Report Type: 
  Country: None (occurrence: None)
  Receive Date: 20110309
  Receipt Date: 20110302
  Transmission Date: 20110831
  Serious: Yes (Hospitalization)
  Sender: FDA-Public Use
  Company Number: ES-ELI_LILLY_AND_COMPANY-ES201103000852

PATIENT
  Sex: Female
  Weight: 90 kg

DRUGS (7)
  1. ATACAND [Concomitant]
     Indication: HYPERTENSION
     Dosage: UNK, DAILY (1/D)
     Route: 048
  2. NOLOTIL [Concomitant]
     Indication: PAIN
     Dosage: UNK, 3/D (EVERY EIGHT HOURS)
     Route: 048
  3. OMEPRAZOLE [Concomitant]
     Indication: GASTRIC DISORDER
     Dosage: UNK, DAILY (1/D)
     Route: 048
  4. PARACETAMOL [Concomitant]
     Indication: PAIN
     Dosage: UNK, 3/D (EVERY 8 HOURS)
     Route: 048
  5. DURAGESIC-100 [Concomitant]
     Indication: PAIN
     Dosage: UNK, 1 PATCH EVERY 72 HOURS
     Route: 065
  6. FORTEO [Suspect]
     Indication: OSTEOPOROSIS
     Dosage: 20 UG, DAILY (1/D)
     Route: 058
     Dates: start: 20101103
  7. CALCIO [Concomitant]
     Indication: OSTEOPOROSIS
     Dosage: UNK, DAILY (1/D)
     Route: 048

REACTIONS (1)
  - DEVICE DISLOCATION [None]
